FAERS Safety Report 5877486-9 (Version None)
Quarter: 2008Q3

REPORT INFORMATION
  Report Type: 
  Country: None (occurrence: None)
  Receive Date: 20080909
  Receipt Date: 20080902
  Transmission Date: 20090109
  Serious: Yes (Death, Hospitalization)
  Sender: FDA-Public Use
  Company Number: 2008SP017979

PATIENT
  Age: 59 Year
  Sex: Female
  Weight: 82 kg

DRUGS (1)
  1. TEMOZLOMIDE (S-P) [Suspect]
     Indication: NON-SMALL CELL LUNG CANCER
     Dosage: 75 MG/M2;PO
     Route: 048
     Dates: start: 20080722, end: 20080811

REACTIONS (15)
  - ACUTE RESPIRATORY DISTRESS SYNDROME [None]
  - BLOOD PH DECREASED [None]
  - BLOOD PRESSURE DECREASED [None]
  - BLOOD PRESSURE INADEQUATELY CONTROLLED [None]
  - CARDIAC ARREST [None]
  - CULTURE URINE POSITIVE [None]
  - FEBRILE NEUTROPENIA [None]
  - KLEBSIELLA INFECTION [None]
  - MENTAL STATUS CHANGES [None]
  - PANCYTOPENIA [None]
  - PLATELET COUNT DECREASED [None]
  - PO2 DECREASED [None]
  - PROTEUS INFECTION [None]
  - PULMONARY OEDEMA [None]
  - URINARY TRACT INFECTION [None]
